FAERS Safety Report 21509099 (Version 1)
Quarter: 2022Q4

REPORT INFORMATION
  Report Type: Spontaneous
  Country: US (occurrence: US)
  Receive Date: 20221026
  Receipt Date: 20221026
  Transmission Date: 20230113
  Serious: Yes (Hospitalization, Other)
  Sender: FDA-Public Use
  Company Number: US-CIPLA LTD.-2022US06199

PATIENT
  Age: 40 Year
  Sex: Female

DRUGS (1)
  1. CYCLOBENZAPRINE [Suspect]
     Active Substance: CYCLOBENZAPRINE
     Dosage: INGESTED 42 TABLETS OF 10 MG STRENGTH CYCLOBENZAPRINE PILLS
     Route: 048

REACTIONS (5)
  - Suicide attempt [Unknown]
  - Rhabdomyolysis [Recovered/Resolved]
  - Electrocardiogram QT prolonged [Recovered/Resolved]
  - Ventricular tachycardia [Recovered/Resolved]
  - Intentional overdose [Unknown]
